FAERS Safety Report 10497263 (Version 2)
Quarter: 2014Q4

REPORT INFORMATION
  Report Type: Spontaneous
  Country: FR (occurrence: FR)
  Receive Date: 20141006
  Receipt Date: 20141029
  Transmission Date: 20150528
  Serious: Yes (Hospitalization)
  Sender: FDA-Public Use
  Company Number: FR-ROCHE-1468259

PATIENT
  Age: 53 Year
  Sex: Male

DRUGS (9)
  1. ZELBORAF [Suspect]
     Active Substance: VEMURAFENIB
     Route: 048
     Dates: start: 20140911
  2. DERMOVAL (FRANCE) [Concomitant]
     Dosage: 2 TUBES?IN THE EVENING DURING 1 WEEK, THEN EVERY 2 DAYS DURING 1 WEEK
     Route: 065
  3. LOCAPRED [Concomitant]
     Active Substance: DESONIDE
     Dosage: ON THE FACE IN THE EVENING
     Route: 065
  4. ZELBORAF [Suspect]
     Active Substance: VEMURAFENIB
     Indication: METASTATIC MALIGNANT MELANOMA
     Route: 048
     Dates: start: 20140722, end: 20140826
  5. ZELBORAF [Suspect]
     Active Substance: VEMURAFENIB
     Route: 048
     Dates: start: 201408
  6. TAFINLAR [Suspect]
     Active Substance: DABRAFENIB MESYLATE
     Route: 048
     Dates: start: 20140930
  7. AUGMENTIN [Concomitant]
     Active Substance: AMOXICILLIN\CLAVULANATE POTASSIUM
     Route: 065
  8. LOVENOX [Concomitant]
     Active Substance: ENOXAPARIN SODIUM
     Dosage: UNTIL INR VALUE BETWEEB2 AND 3
     Route: 058
  9. TAFINLAR [Suspect]
     Active Substance: DABRAFENIB MESYLATE
     Indication: METASTATIC MALIGNANT MELANOMA
     Route: 048
     Dates: start: 20140826, end: 20140903

REACTIONS (5)
  - Hyperkeratosis [Unknown]
  - Dysgeusia [Unknown]
  - Photosensitivity reaction [Unknown]
  - Dysphagia [Recovering/Resolving]
  - Rash erythematous [Recovered/Resolved]

NARRATIVE: CASE EVENT DATE: 201408
